FAERS Safety Report 18807120 (Version 6)
Quarter: 2022Q2

REPORT INFORMATION
  Report Type: Spontaneous
  Country: US (occurrence: US)
  Receive Date: 20210129
  Receipt Date: 20220516
  Transmission Date: 20220720
  Serious: No
  Sender: FDA-Public Use
  Company Number: US-PFIZER INC-2021063426

PATIENT
  Age: 11 Year
  Sex: Male
  Weight: 24.95 kg

DRUGS (5)
  1. GENOTROPIN [Suspect]
     Active Substance: SOMATROPIN
     Indication: Growth hormone deficiency
     Dosage: 0.6 MG, DAILY
  2. GENOTROPIN [Suspect]
     Active Substance: SOMATROPIN
     Dosage: 1 MG, 1X/DAY
  3. GENOTROPIN [Suspect]
     Active Substance: SOMATROPIN
     Dosage: 1.2 MG, DAILY
     Dates: end: 20220313
  4. GENOTROPIN [Suspect]
     Active Substance: SOMATROPIN
     Indication: Growth hormone deficiency
     Dosage: 1 MG, 1X/DAY, [NDC:0001326468]
  5. VYVANSE [Concomitant]
     Active Substance: LISDEXAMFETAMINE DIMESYLATE
     Indication: Attention deficit hyperactivity disorder
     Dosage: 50 MG, DAILY AND TO SKIP ONE PILL ONCE A WEEK

REACTIONS (4)
  - Circumstance or information capable of leading to medication error [Unknown]
  - Device information output issue [Unknown]
  - Product administered at inappropriate site [Unknown]
  - Device issue [Unknown]

NARRATIVE: CASE EVENT DATE: 20220313
